FAERS Safety Report 7238384-1 (Version None)
Quarter: 2011Q1

REPORT INFORMATION
  Report Type: 
  Country: None (occurrence: None)
  Receive Date: 20110119
  Receipt Date: 20110119
  Transmission Date: 20110831
  Serious: No
  Sender: FDA-Public Use
  Company Number: None

PATIENT
  Age: 42 Year
  Sex: Male
  Weight: 95.2554 kg

DRUGS (1)
  1. PREDNISONE TAB [Suspect]
     Indication: SINUSITIS
     Dosage: PO
     Route: 048
     Dates: start: 19990101, end: 20000630

REACTIONS (1)
  - OSTEONECROSIS [None]
